FAERS Safety Report 23453333 (Version 1)
Quarter: 2024Q1

REPORT INFORMATION
  Report Type: Spontaneous
  Country: US (occurrence: None)
  Receive Date: 20240129
  Receipt Date: 20240129
  Transmission Date: 20240410
  Serious: Yes (Other)
  Sender: FDA-Public Use
  Company Number: None

PATIENT
  Age: 43 Year
  Sex: Female
  Weight: 57.6 kg

DRUGS (1)
  1. RECLAST [Suspect]
     Active Substance: ZOLEDRONIC ACID
     Indication: Osteoporosis
     Dates: start: 20240122, end: 20240122

REACTIONS (8)
  - Musculoskeletal pain [None]
  - Headache [None]
  - Dyspepsia [None]
  - Eructation [None]
  - Abdominal pain upper [None]
  - Nausea [None]
  - Hypophagia [None]
  - Hyperventilation [None]

NARRATIVE: CASE EVENT DATE: 20240122
